FAERS Safety Report 14678769 (Version 2)
Quarter: 2019Q4

REPORT INFORMATION
  Report Type: Spontaneous
  Country: IN (occurrence: IN)
  Receive Date: 20180326
  Receipt Date: 20191011
  Transmission Date: 20200122
  Serious: Yes (Hospitalization, Other)
  Sender: FDA-Public Use
  Company Number: IN-ACCORD-064767

PATIENT
  Age: 70 Year
  Sex: Female

DRUGS (4)
  1. ALENDRONIC ACID [Suspect]
     Active Substance: ALENDRONIC ACID
     Indication: OSTEOPOROSIS
     Dosage: FOR A PERIOD OF LESS THAN 1 YEAR (9 TO 12 MONTHS)
     Route: 048
  2. METHOTREXATE. [Suspect]
     Active Substance: METHOTREXATE
     Indication: RHEUMATOID ARTHRITIS
     Dosage: LOW-DOSE METHOTREXATE 10-15 MG/WEEK
  3. FOLIC ACID. [Concomitant]
     Active Substance: FOLIC ACID
     Indication: RHEUMATOID ARTHRITIS
     Dosage: SUPPLEMENTS FOR PERIOD OF 4-10 YEARS
  4. CHLORHEXIDINE [Concomitant]
     Active Substance: CHLORHEXIDINE
     Indication: POSTOPERATIVE CARE

REACTIONS (3)
  - Bone marrow failure [Recovered/Resolved]
  - Osteonecrosis of jaw [Recovered/Resolved]
  - Sinusitis [Unknown]
